FAERS Safety Report 6180815-2 (Version None)
Quarter: 2009Q2

REPORT INFORMATION
  Report Type: 
  Country: None (occurrence: None)
  Receive Date: 20090504
  Receipt Date: 20090421
  Transmission Date: 20091009
  Serious: No
  Sender: FDA-Public Use
  Company Number: SPI200900140

PATIENT
  Sex: Female

DRUGS (1)
  1. AMITIZA [Suspect]
     Indication: IRRITABLE BOWEL SYNDROME
     Dosage: 8 MCG, QD, ORAL
     Route: 048
     Dates: start: 20090401, end: 20090401

REACTIONS (1)
  - DYSPNOEA [None]
